FAERS Safety Report 8599257-5 (Version None)
Quarter: 2012Q3

REPORT INFORMATION
  Report Type: 
  Country: None (occurrence: None)
  Receive Date: 20120816
  Receipt Date: 20120302
  Transmission Date: 20120928
  Serious: No
  Sender: FDA-Public Use
  Company Number: US-AMGEN-USASP2011054126

PATIENT
  Age: 58 Year
  Sex: Male

DRUGS (3)
  1. NEUPOGEN [Suspect]
     Indication: MANTLE CELL LYMPHOMA
  2. NEUPOGEN [Suspect]
     Indication: BONE MARROW DONATION
     Dosage: 1200 MUG, QD
     Dates: start: 20111016
  3. MOZOBIL [Concomitant]

REACTIONS (1)
  - DRUG INEFFECTIVE [None]
